FAERS Safety Report 12556224 (Version 1)
Quarter: 2016Q3

REPORT INFORMATION
  Report Type: Spontaneous
  Country: HK (occurrence: HK)
  Receive Date: 20160714
  Receipt Date: 20160714
  Transmission Date: 20161109
  Serious: Yes (Other)
  Sender: FDA-Public Use
  Company Number: PHHY2015HK175971

PATIENT
  Age: 60 Year
  Sex: Male

DRUGS (1)
  1. NEORAL [Suspect]
     Active Substance: CYCLOSPORINE
     Indication: PRODUCT USED FOR UNKNOWN INDICATION
     Dosage: UNK
     Route: 065
     Dates: start: 20100101

REACTIONS (4)
  - Impaired gastric emptying [Unknown]
  - Renal tubular necrosis [Unknown]
  - Cytomegalovirus infection [Unknown]
  - Proteinuria [Unknown]

NARRATIVE: CASE EVENT DATE: 20100101
